FAERS Safety Report 23081242 (Version 1)
Quarter: 2023Q4

REPORT INFORMATION
  Report Type: Spontaneous
  Country: CA (occurrence: CA)
  Receive Date: 20231018
  Receipt Date: 20231018
  Transmission Date: 20240109
  Serious: Yes (Other)
  Sender: FDA-Public Use
  Company Number: CA-GLAXOSMITHKLINE-CACH2021GSK016543

PATIENT
  Age: 19 Year
  Sex: Female

DRUGS (58)
  1. ACETAMINOPHEN [Suspect]
     Active Substance: ACETAMINOPHEN
     Indication: Complex regional pain syndrome
     Dosage: UNK
     Route: 065
  2. AMITRIPTYLINE [Suspect]
     Active Substance: AMITRIPTYLINE
     Dosage: 150 MG
     Route: 065
  3. AMITRIPTYLINE [Suspect]
     Active Substance: AMITRIPTYLINE
     Dosage: 150 MG
     Route: 065
  4. AMITRIPTYLINE [Suspect]
     Active Substance: AMITRIPTYLINE
     Indication: Complex regional pain syndrome
     Dosage: 50 MG
     Route: 065
  5. AMITRIPTYLINE [Suspect]
     Active Substance: AMITRIPTYLINE
     Dosage: 50 MG
     Route: 065
  6. ASPIRIN [Suspect]
     Active Substance: ASPIRIN
     Indication: Product used for unknown indication
     Route: 065
  7. ASPIRIN [Suspect]
     Active Substance: ASPIRIN
     Indication: Complex regional pain syndrome
     Dosage: UNK
     Route: 065
  8. BUPROPION [Suspect]
     Active Substance: BUPROPION
     Indication: Complex regional pain syndrome
     Dosage: UNK
     Route: 065
  9. CAPSAICIN [Suspect]
     Active Substance: CAPSAICIN
     Indication: Complex regional pain syndrome
     Dosage: UNK
     Route: 065
  10. CARBAMAZEPINE [Suspect]
     Active Substance: CARBAMAZEPINE
     Indication: Complex regional pain syndrome
     Dosage: UNK
     Route: 065
  11. CELECOXIB [Suspect]
     Active Substance: CELECOXIB
     Indication: Complex regional pain syndrome
     Dosage: UNK
     Route: 065
  12. CITALOPRAM [Suspect]
     Active Substance: CITALOPRAM HYDROBROMIDE
     Indication: Complex regional pain syndrome
     Dosage: UNK
     Route: 065
  13. CLONIDINE [Suspect]
     Active Substance: CLONIDINE
     Indication: Complex regional pain syndrome
     Dosage: UNK
     Route: 065
  14. CODEINE PHOSPHATE [Suspect]
     Active Substance: CODEINE PHOSPHATE
     Indication: Complex regional pain syndrome
     Dosage: UNK
     Route: 065
  15. HERBALS [Suspect]
     Active Substance: HERBALS
     Indication: Product used for unknown indication
     Dosage: UNK
     Route: 065
  16. DESIPRAMINE [Suspect]
     Active Substance: DESIPRAMINE
     Indication: Complex regional pain syndrome
     Dosage: UNK
     Route: 065
  17. DEXTROMETHORPHAN HYDROBROMIDE [Suspect]
     Active Substance: DEXTROMETHORPHAN HYDROBROMIDE
     Indication: Complex regional pain syndrome
     Dosage: UNK
     Route: 065
  18. DICLOFENAC [Suspect]
     Active Substance: DICLOFENAC
     Indication: Complex regional pain syndrome
     Dosage: UNK
     Route: 047
  19. DULOXETINE [Suspect]
     Active Substance: DULOXETINE
     Indication: Complex regional pain syndrome
     Dosage: UNK
     Route: 065
  20. EMLA [Suspect]
     Active Substance: LIDOCAINE\PRILOCAINE
     Indication: Product used for unknown indication
     Dosage: UNK
     Route: 065
  21. FENTANYL [Suspect]
     Active Substance: FENTANYL
     Dosage: UNK
     Route: 062
  22. FENTANYL [Suspect]
     Active Substance: FENTANYL
     Indication: Complex regional pain syndrome
     Dosage: UNK, (1 IN 3 D)
     Route: 062
  23. FENTANYL [Suspect]
     Active Substance: FENTANYL
     Dosage: UNK, (1 IN 3 D)
     Route: 062
  24. GABAPENTIN [Suspect]
     Active Substance: GABAPENTIN
     Indication: Complex regional pain syndrome
     Dosage: UNK
     Route: 065
  25. HYDROMORPHONE [Suspect]
     Active Substance: HYDROMORPHONE
     Indication: Complex regional pain syndrome
     Dosage: UNK
     Route: 065
  26. IBUPROFEN [Suspect]
     Active Substance: IBUPROFEN
     Indication: Complex regional pain syndrome
     Dosage: UNK
     Route: 065
  27. KETAMINE [Suspect]
     Active Substance: KETAMINE
     Dosage: 25 MG
     Route: 048
  28. KETAMINE [Suspect]
     Active Substance: KETAMINE
     Indication: Complex regional pain syndrome
     Dosage: 50 MG
     Route: 048
  29. KETAMINE [Suspect]
     Active Substance: KETAMINE
     Dosage: UNK
     Route: 042
  30. KETOROLAC [Suspect]
     Active Substance: KETOROLAC TROMETHAMINE
     Indication: Complex regional pain syndrome
     Dosage: UNK
     Route: 065
  31. LIDOCAINE [Suspect]
     Active Substance: LIDOCAINE
     Dosage: UNK
     Route: 042
  32. LIDOCAINE [Suspect]
     Active Substance: LIDOCAINE
     Indication: Complex regional pain syndrome
     Dosage: UNK
     Route: 061
  33. LIDOCAINE [Suspect]
     Active Substance: LIDOCAINE
     Dosage: UNK
     Route: 062
  34. LIDOCAINE [Suspect]
     Active Substance: LIDOCAINE
     Dosage: UNK
     Route: 065
  35. MEMANTINE HYDROCHLORIDE [Suspect]
     Active Substance: MEMANTINE HYDROCHLORIDE
     Indication: Complex regional pain syndrome
     Dosage: UNK
     Route: 065
  36. METHADONE [Suspect]
     Active Substance: METHADONE HYDROCHLORIDE
     Indication: Complex regional pain syndrome
     Dosage: UNK
     Route: 065
  37. MORPHINE [Suspect]
     Active Substance: MORPHINE
     Indication: Complex regional pain syndrome
     Dosage: UNK
     Route: 065
  38. MEXILETINE [Suspect]
     Active Substance: MEXILETINE
     Indication: Complex regional pain syndrome
     Dosage: UNK
     Route: 065
  39. NAPROXEN [Suspect]
     Active Substance: NAPROXEN
     Indication: Complex regional pain syndrome
     Dosage: UNK
     Route: 065
  40. NORTRIPTYLINE [Suspect]
     Active Substance: NORTRIPTYLINE
     Indication: Complex regional pain syndrome
     Dosage: UNK
     Route: 065
  41. OXCARBAZEPINE [Suspect]
     Active Substance: OXCARBAZEPINE
     Indication: Complex regional pain syndrome
     Dosage: UNK
     Route: 065
  42. OXYCODONE [Suspect]
     Active Substance: OXYCODONE
     Dosage: 10 MG
     Route: 065
  43. OXYCODONE [Suspect]
     Active Substance: OXYCODONE
     Dosage: 120 MG
     Route: 065
  44. OXYCODONE [Suspect]
     Active Substance: OXYCODONE
     Dosage: 120 MG
     Route: 065
  45. OXYCODONE [Suspect]
     Active Substance: OXYCODONE
     Indication: Complex regional pain syndrome
     Dosage: 240 MG
     Route: 065
  46. OXYCODONE [Suspect]
     Active Substance: OXYCODONE
     Dosage: 240 MG
     Route: 065
  47. OXYCODONE [Suspect]
     Active Substance: OXYCODONE
     Dosage: 30 MG
     Route: 065
  48. OXYCODONE [Suspect]
     Active Substance: OXYCODONE
     Dosage: 50 MG
     Route: 065
  49. OXYCODONE [Suspect]
     Active Substance: OXYCODONE
     Dosage: 50 MG
     Route: 065
  50. PREGABALIN [Suspect]
     Active Substance: PREGABALIN
     Indication: Complex regional pain syndrome
     Dosage: 100 MG
     Route: 065
  51. PREGABALIN [Suspect]
     Active Substance: PREGABALIN
     Dosage: 100 MG
     Route: 065
  52. PREGABALIN [Suspect]
     Active Substance: PREGABALIN
     Dosage: 150 MG
     Route: 065
  53. PREGABALIN [Suspect]
     Active Substance: PREGABALIN
     Dosage: 300 MG
     Route: 065
  54. PREGABALIN [Suspect]
     Active Substance: PREGABALIN
     Dosage: 300 MG
     Route: 065
  55. TOPIRAMATE [Suspect]
     Active Substance: TOPIRAMATE
     Indication: Complex regional pain syndrome
     Dosage: UNK
     Route: 065
  56. TRAMADOL HYDROCHLORIDE [Suspect]
     Active Substance: TRAMADOL HYDROCHLORIDE
     Indication: Complex regional pain syndrome
     Dosage: UNK
     Route: 065
  57. VENLAFAXINE HYDROCHLORIDE [Suspect]
     Active Substance: VENLAFAXINE HYDROCHLORIDE
     Indication: Complex regional pain syndrome
     Dosage: UNK
     Route: 065
  58. VENLAFAXINE HYDROCHLORIDE [Suspect]
     Active Substance: VENLAFAXINE HYDROCHLORIDE
     Dosage: UNK
     Route: 065

REACTIONS (3)
  - Immune thrombocytopenia [Unknown]
  - Weight increased [Unknown]
  - Therapy non-responder [Unknown]
